FAERS Safety Report 8790789 (Version 1)
Quarter: 2012Q4

REPORT INFORMATION
  Report Type: Spontaneous
  Country: DK (occurrence: None)
  Receive Date: 20120907
  Receipt Date: 20120907
  Transmission Date: 20130627
  Serious: Yes (Disabling, Other)
  Sender: FDA-Public Use
  Company Number: 2012MA010714

PATIENT
  Age: 38 Year
  Sex: Female

DRUGS (2)
  1. VENLAFAXINE HYDROCHLORIDE [Suspect]
     Indication: ANXIETY
     Route: 048
     Dates: start: 20120401
  2. VENLAFAXINE HYDROCHLORIDE [Suspect]
     Indication: DEPRESSION
     Route: 048
     Dates: start: 20120401

REACTIONS (3)
  - Change of bowel habit [None]
  - Appetite disorder [None]
  - Functional gastrointestinal disorder [None]
